FAERS Safety Report 7990898-2 (Version None)
Quarter: 2011Q4

REPORT INFORMATION
  Report Type: 
  Country: None (occurrence: None)
  Receive Date: 20111219
  Receipt Date: 20111201
  Transmission Date: 20120403
  Serious: Yes (Death, Hospitalization)
  Sender: FDA-Public Use
  Company Number: FR-ROCHE-1016461

PATIENT
  Age: 41 Year
  Sex: Male

DRUGS (7)
  1. SULFADIAZINE [Suspect]
     Indication: PRODUCT USED FOR UNKNOWN INDICATION
     Route: 065
  2. SULFADIAZINE [Suspect]
     Route: 065
     Dates: start: 20100201
  3. VALGANCICLOVIR [Suspect]
     Indication: CYTOMEGALOVIRUS TEST POSITIVE
     Route: 065
     Dates: start: 20100127, end: 20100217
  4. EXTENCILLINE [Suspect]
     Indication: SYPHILIS
     Route: 065
     Dates: start: 20091201, end: 20100219
  5. PYRIMETHAMINE TAB [Suspect]
     Route: 065
     Dates: start: 20100201
  6. HYDROCORTISONE [Suspect]
     Indication: PRODUCT USED FOR UNKNOWN INDICATION
     Route: 065
     Dates: start: 20100112, end: 20100225
  7. PYRIMETHAMINE TAB [Suspect]
     Indication: PRODUCT USED FOR UNKNOWN INDICATION
     Route: 065

REACTIONS (5)
  - RASH MACULO-PAPULAR [None]
  - PRURITUS [None]
  - DERMATITIS BULLOUS [None]
  - CYTOLYTIC HEPATITIS [None]
  - RESPIRATORY DISTRESS [None]
